FAERS Safety Report 6839419-8 (Version None)
Quarter: 2010Q2

REPORT INFORMATION
  Report Type: 
  Country: None (occurrence: None)
  Receive Date: 20100629
  Receipt Date: 20100414
  Transmission Date: 20101027
  Serious: No
  Sender: FDA-Public Use
  Company Number: US-WYE-H14614710

PATIENT
  Age: 50 Year
  Sex: Female
  Weight: 88.08 kg

DRUGS (6)
  1. PRISTIQ [Suspect]
     Indication: DEPRESSION
     Dosage: 50 MG 2X PER 1 DAY, ORAL ; 25 MG 2X PER 1 DAY, ORAL
     Route: 048
     Dates: start: 20100401, end: 20100401
  2. PRISTIQ [Suspect]
     Indication: DEPRESSION
     Dosage: 50 MG 2X PER 1 DAY, ORAL ; 25 MG 2X PER 1 DAY, ORAL
     Route: 048
     Dates: start: 20100401
  3. TRANXENE [Concomitant]
  4. OMEPRAZOLE [Concomitant]
  5. ZOCOR [Concomitant]
  6. TRAZODONE HCL [Concomitant]

REACTIONS (7)
  - ASTHENIA [None]
  - CRYING [None]
  - ENERGY INCREASED [None]
  - NAUSEA [None]
  - NERVOUSNESS [None]
  - TREMOR [None]
  - WRONG TECHNIQUE IN DRUG USAGE PROCESS [None]
